FAERS Safety Report 23363817 (Version 7)
Quarter: 2024Q2

REPORT INFORMATION
  Report Type: Report from Study
  Country: GB (occurrence: GB)
  Receive Date: 20240104
  Receipt Date: 20240628
  Transmission Date: 20240716
  Serious: Yes (Hospitalization, Other)
  Sender: FDA-Public Use
  Company Number: GB-ABBVIE-5559546

PATIENT
  Age: 73 Year
  Sex: Male

DRUGS (12)
  1. CARBIDOPA\LEVODOPA [Suspect]
     Active Substance: CARBIDOPA\LEVODOPA
     Indication: Parkinson^s disease
     Dosage: MD: 12.0 TO 12.2; CR:2.5 2.7; ED:1.2
     Route: 050
     Dates: start: 2023, end: 2023
  2. CARBIDOPA\LEVODOPA [Suspect]
     Active Substance: CARBIDOPA\LEVODOPA
     Dosage: MD: 12.0; CR:2.5 AND ED:1.2
     Route: 050
     Dates: start: 2023, end: 2023
  3. CARBIDOPA\LEVODOPA [Suspect]
     Active Substance: CARBIDOPA\LEVODOPA
     Dosage: MD: 12.2 MLS; CR: 2.9 MLS/HR AND ED:1.2 MLS
     Route: 050
     Dates: start: 2024
  4. CARBIDOPA\LEVODOPA [Suspect]
     Active Substance: CARBIDOPA\LEVODOPA
     Dosage: MD:12.2 CR: 3.1, ED: 1.4
     Route: 050
  5. CARBIDOPA\LEVODOPA [Suspect]
     Active Substance: CARBIDOPA\LEVODOPA
     Dosage: MD: 12.2 CR: 3.8 ED: 1.8
     Route: 050
     Dates: end: 2024
  6. BENSERAZIDE HYDROCHLORIDE\LEVODOPA [Concomitant]
     Active Substance: BENSERAZIDE HYDROCHLORIDE\LEVODOPA
     Indication: Product used for unknown indication
     Dosage: 25/100MG?FREQUENCY TEXT: AT 0300 ?FREQUENCY TEXT: 1 AT 22.00?MADOPAR MR
     Route: 065
  7. FYBOGEL [Concomitant]
     Active Substance: HERBALS\PLANTAGO OVATA SEED
     Indication: Constipation
     Dosage: 2-3 SACHETS
     Route: 048
  8. ROTIGOTINE [Concomitant]
     Active Substance: ROTIGOTINE
     Indication: Product used for unknown indication
     Dosage: FREQUENCY TEXT: OVER NIGHT, ROTIGOTINE PATCH
     Route: 065
  9. POLYETHYLENE GLYCOL 3350\POTASSIUM CHLORIDE\SODIUM BICARBONATE\SODIUM [Concomitant]
     Active Substance: POLYETHYLENE GLYCOL 3350\POTASSIUM CHLORIDE\SODIUM BICARBONATE\SODIUM CHLORIDE
     Indication: Constipation
     Dosage: 2-3 SACHETS
     Route: 048
  10. DOCUSATE SODIUM [Concomitant]
     Active Substance: DOCUSATE SODIUM
     Indication: Constipation
     Dosage: 4X 100MGS
     Route: 048
  11. BENSERAZIDE HYDROCHLORIDE\LEVODOPA [Concomitant]
     Active Substance: BENSERAZIDE HYDROCHLORIDE\LEVODOPA
     Indication: Product used for unknown indication
     Dosage: 25/100MGS X1,?FREQUENCY TEXT: X1 0200
     Route: 048
  12. BENSERAZIDE HYDROCHLORIDE\LEVODOPA [Concomitant]
     Active Substance: BENSERAZIDE HYDROCHLORIDE\LEVODOPA
     Indication: Product used for unknown indication
     Dosage: FREQUENCY TEXT: TAKEN AT 0200 AND 0500
     Route: 048

REACTIONS (17)
  - Urinary tract infection [Unknown]
  - Diarrhoea [Unknown]
  - Muscle rigidity [Unknown]
  - Hernia [Unknown]
  - Therapeutic product effect incomplete [Not Recovered/Not Resolved]
  - Weight decreased [Not Recovered/Not Resolved]
  - Bradykinesia [Unknown]
  - Asthenia [Not Recovered/Not Resolved]
  - Abnormal dreams [Unknown]
  - Dyskinesia [Unknown]
  - Freezing phenomenon [Not Recovered/Not Resolved]
  - Mobility decreased [Unknown]
  - On and off phenomenon [Unknown]
  - Constipation [Not Recovered/Not Resolved]
  - Immobile [Unknown]
  - Balance disorder [Not Recovered/Not Resolved]
  - Stoma site induration [Not Recovered/Not Resolved]

NARRATIVE: CASE EVENT DATE: 20230101
